FAERS Safety Report 5502265-1 (Version None)
Quarter: 2007Q4

REPORT INFORMATION
  Report Type: 
  Country: None (occurrence: None)
  Receive Date: 20071030
  Receipt Date: 20071022
  Transmission Date: 20080405
  Serious: Yes (Death, Hospitalization)
  Sender: FDA-Public Use
  Company Number: TR-ELI_LILLY_AND_COMPANY-TR200710005450

PATIENT
  Sex: Male

DRUGS (2)
  1. HUMALOG MIX 75/25 [Suspect]
     Indication: TYPE 2 DIABETES MELLITUS
     Dosage: UNK, UNKNOWN
     Route: 058
  2. LANTUS [Concomitant]
     Dosage: UNK, UNKNOWN
     Route: 058

REACTIONS (3)
  - CARDIAC FAILURE [None]
  - LUNG DISORDER [None]
  - SUFFOCATION FEELING [None]
